FAERS Safety Report 5164798-X (Version None)
Quarter: 2006Q4

REPORT INFORMATION
  Report Type: 
  Country: None (occurrence: None)
  Receive Date: 20061205
  Receipt Date: 20060908
  Transmission Date: 20070319
  Serious: Yes (Life-Threatening, Hospitalization)
  Sender: FDA-Public Use
  Company Number: JP-AVENTIS-200612801JP

PATIENT
  Age: 54 Year
  Sex: Female
  Weight: 47 kg

DRUGS (9)
  1. ARAVA [Suspect]
     Indication: RHEUMATOID ARTHRITIS
     Route: 048
     Dates: start: 20031009, end: 20031011
  2. ARAVA [Suspect]
     Route: 048
     Dates: start: 20031012, end: 20061110
  3. LANSOPRAZOLE [Concomitant]
     Indication: GASTRIC ULCER
     Route: 048
     Dates: start: 20050311
  4. VOLTAREN [Concomitant]
     Route: 048
     Dates: start: 20050519
  5. CONIEL [Concomitant]
     Indication: HYPERTENSION
     Route: 048
     Dates: start: 20050310
  6. PREDNISOLONE [Concomitant]
     Route: 048
  7. DIOVANE [Concomitant]
     Indication: HYPERTENSION
     Route: 048
     Dates: start: 20020801
  8. LIPIDIL [Concomitant]
     Indication: HYPERLIPIDAEMIA
     Route: 048
     Dates: start: 20050331
  9. BASEN [Concomitant]
     Indication: DIABETES MELLITUS
     Route: 048
     Dates: start: 20050825

REACTIONS (3)
  - ELECTROCARDIOGRAM ST SEGMENT ABNORMAL [None]
  - PLEURAL EFFUSION [None]
  - PULMONARY OEDEMA [None]
